FAERS Safety Report 8489887-3 (Version None)
Quarter: 2012Q3

REPORT INFORMATION
  Report Type: 
  Country: None (occurrence: None)
  Receive Date: 20120705
  Receipt Date: 20120628
  Transmission Date: 20120928
  Serious: Yes (Other)
  Sender: FDA-Public Use
  Company Number: PHHY2012GB055519

PATIENT
  Age: 72 Year
  Sex: Male
  Weight: 81 kg

DRUGS (8)
  1. BENDROFLUMETHIAZIDE [Concomitant]
     Dates: start: 20120309
  2. SIMVASTATIN [Suspect]
     Dates: start: 20120309
  3. COLCHICINE [Concomitant]
     Dates: start: 20120612
  4. AMLODIPINE [Concomitant]
     Dates: start: 20120309, end: 20120605
  5. BISOPROLOL FUMARATE [Concomitant]
     Dates: start: 20120309
  6. ASPIRIN [Concomitant]
     Dates: start: 20120309
  7. RAMIPRIL [Concomitant]
     Dates: start: 20120309
  8. ACETAMINOPHEN [Concomitant]
     Dates: start: 20120508, end: 20120520

REACTIONS (1)
  - TENDON RUPTURE [None]
